FAERS Safety Report 22051254 (Version 1)
Quarter: 2023Q1

REPORT INFORMATION
  Report Type: Spontaneous
  Country: US (occurrence: US)
  Receive Date: 20230301
  Receipt Date: 20230301
  Transmission Date: 20230418
  Serious: Yes (Other)
  Sender: FDA-Public Use
  Company Number: US-TEVA-2023-US-2859800

PATIENT
  Sex: Male

DRUGS (2)
  1. AMIODARONE [Suspect]
     Active Substance: AMIODARONE
     Indication: Product used for unknown indication
     Dosage: FOR 5 DAYS
     Route: 042
     Dates: start: 202112
  2. AMIODARONE [Suspect]
     Active Substance: AMIODARONE
     Dosage: DAILY MAINTENANCE
     Route: 065
     Dates: end: 202212

REACTIONS (11)
  - Suicidal ideation [Unknown]
  - Blindness unilateral [Unknown]
  - Retinal detachment [Unknown]
  - Depression [Not Recovered/Not Resolved]
  - Alopecia [Unknown]
  - Irritability [Unknown]
  - Disturbance in attention [Unknown]
  - Memory impairment [Unknown]
  - Thinking abnormal [Unknown]
  - Chronic obstructive pulmonary disease [Unknown]
  - Asthma [Unknown]

NARRATIVE: CASE EVENT DATE: 20220801
